FAERS Safety Report 23839172 (Version 2)
Quarter: 2024Q3

REPORT INFORMATION
  Report Type: Spontaneous
  Country: US (occurrence: US)
  Receive Date: 20240509
  Receipt Date: 20240716
  Transmission Date: 20241016
  Serious: Yes (Other)
  Sender: BRISTOL MYERS SQUIBB
  Company Number: US-BRISTOL-MYERS SQUIBB COMPANY-2024-068968

PATIENT
  Age: 63 Year
  Sex: Female

DRUGS (1)
  1. REVLIMID [Suspect]
     Active Substance: LENALIDOMIDE
     Indication: Neoplasm
     Dosage: FREQUENCY: TAKE 1 CAPSULE BY MOUTH 1 TIME A DAY FOR 14 DAYS ON AND 7 DAYS OFF
     Route: 048
     Dates: start: 202404

REACTIONS (4)
  - Gastrointestinal disorder [Recovering/Resolving]
  - Lower limb fracture [Unknown]
  - Off label use [Unknown]
  - Constipation [Not Recovered/Not Resolved]
